FAERS Safety Report 7357574-0 (Version None)
Quarter: 2011Q1

REPORT INFORMATION
  Report Type: 
  Country: None (occurrence: None)
  Receive Date: 20110317
  Receipt Date: 20100701
  Transmission Date: 20110831
  Serious: Yes (Hospitalization, Other)
  Sender: FDA-Public Use
  Company Number: US-BAYER-200940968NA

PATIENT
  Sex: Male
  Weight: 77.098 kg

DRUGS (9)
  1. REGLAN [Concomitant]
     Dosage: 5 MG FOUR TIMES A DAY
     Route: 048
     Dates: end: 20011011
  2. TRASYLOL [Suspect]
     Indication: MITRAL VALVE REPAIR
  3. HYDRALAZINE [Concomitant]
     Dosage: 25 MG DAILY
     Route: 048
     Dates: end: 20011011
  4. LOPRESSOR [Concomitant]
     Dosage: 5 MG
     Route: 042
     Dates: start: 20011002
  5. LASIX [Concomitant]
     Dosage: 40 MG
     Route: 042
     Dates: start: 20011003, end: 20011011
  6. PHOSLO [Concomitant]
     Dosage: 667 MG 2 TBL THREE TIMES A DAY
     Route: 048
     Dates: end: 20011011
  7. NORVASC [Concomitant]
     Dosage: 5 MG DAILY
     Route: 048
     Dates: end: 20011011
  8. COREG [Concomitant]
     Dosage: 12.5 MG TWICE A DAY
     Route: 048
     Dates: end: 20011011
  9. ISORDIL [Concomitant]
     Dosage: 30 MG DAILY
     Route: 048
     Dates: end: 20011011

REACTIONS (11)
  - INJURY [None]
  - ANXIETY [None]
  - DISABILITY [None]
  - RENAL INJURY [None]
  - DEPRESSION [None]
  - ANHEDONIA [None]
  - UNEVALUABLE EVENT [None]
  - MULTI-ORGAN FAILURE [None]
  - FEAR [None]
  - RENAL FAILURE [None]
  - PAIN [None]
